FAERS Safety Report 25920604 (Version 1)
Quarter: 2025Q4

REPORT INFORMATION
  Report Type: Spontaneous
  Country: US (occurrence: US)
  Receive Date: 20251014
  Receipt Date: 20251014
  Transmission Date: 20260117
  Serious: No
  Sender: FENNEC PHARMACEUTICALS
  Company Number: US-FENNEC PHARMACEUTICALS, INC.-2025FEN00066

PATIENT
  Age: 42 Year
  Sex: Male

DRUGS (5)
  1. PEDMARK [Suspect]
     Active Substance: SODIUM THIOSULFATE
     Dosage: 38.8 GRAMS IV OVER 30-60 MINUTES / 4 VIALS PER INFUSION
     Route: 042
     Dates: start: 20250626, end: 20250626
  2. PEDMARK [Suspect]
     Active Substance: SODIUM THIOSULFATE
     Dosage: 38.8 GRAMS IV OVER 30-60 MINUTES / 4 VIALS PER INFUSION (CYCLE #2)
     Route: 042
     Dates: start: 20250717, end: 20250717
  3. PEDMARK [Suspect]
     Active Substance: SODIUM THIOSULFATE
     Dosage: 38.8 GRAMS IV OVER 30-60 MINUTES / 4 VIALS PER INFUSION (CYCLE #3)
     Route: 042
     Dates: start: 20250807, end: 20250807
  4. PEDMARK [Suspect]
     Active Substance: SODIUM THIOSULFATE
     Dosage: 38.8 GRAMS IV OVER 30-60 MINUTES / 4 VIALS PER INFUSION (CYCLE #4)
     Route: 042
     Dates: start: 20250828, end: 20250828
  5. UNSPECIFIED INGREDIENT [Suspect]
     Active Substance: UNSPECIFIED INGREDIENT

REACTIONS (5)
  - Headache [Unknown]
  - Decreased appetite [Unknown]
  - Nausea [Unknown]
  - Vomiting [Unknown]
  - Off label use [Unknown]

NARRATIVE: CASE EVENT DATE: 20250626
